FAERS Safety Report 12633180 (Version 2)
Quarter: 2016Q3

REPORT INFORMATION
  Report Type: Spontaneous
  Country: US (occurrence: US)
  Receive Date: 20160808
  Receipt Date: 20160808
  Transmission Date: 20161109
  Serious: No
  Sender: FDA-Public Use
  Company Number: US-BEH-2016058748

PATIENT
  Sex: Female
  Weight: 111 kg

DRUGS (33)
  1. EPIPEN [Concomitant]
     Active Substance: EPINEPHRINE
  2. MORPHINE SULFATE IR [Concomitant]
     Active Substance: MORPHINE SULFATE
  3. TRAZODONE [Concomitant]
     Active Substance: TRAZODONE HYDROCHLORIDE
  4. LACTULOSE. [Concomitant]
     Active Substance: LACTULOSE
  5. CALCIUM +D3 [Concomitant]
     Active Substance: CALCIUM\CHOLECALCIFEROL
  6. HIZENTRA [Suspect]
     Active Substance: HUMAN IMMUNOGLOBULIN G
     Route: 058
  7. SYNTHROID [Concomitant]
     Active Substance: LEVOTHYROXINE SODIUM
  8. LASIX [Concomitant]
     Active Substance: FUROSEMIDE
  9. ARTIFICIAL TEARS [Concomitant]
     Active Substance: GLYCERIN\HYPROMELLOSES\POLYETHYLENE GLYCOL 400
  10. PROVENTIL [Concomitant]
     Active Substance: ALBUTEROL
  11. METOCLOPRAMIDE. [Concomitant]
     Active Substance: METOCLOPRAMIDE
  12. HIZENTRA [Suspect]
     Active Substance: HUMAN IMMUNOGLOBULIN G
     Route: 058
  13. MEDROL [Concomitant]
     Active Substance: METHYLPREDNISOLONE
  14. RITUXAN [Concomitant]
     Active Substance: RITUXIMAB
  15. L-M-X [Concomitant]
  16. OXYMORPHONE [Concomitant]
     Active Substance: OXYMORPHONE
  17. IMURAN [Concomitant]
     Active Substance: AZATHIOPRINE
  18. KLONOPIN [Concomitant]
     Active Substance: CLONAZEPAM
  19. NASONEX [Concomitant]
     Active Substance: MOMETASONE FUROATE
  20. NEXIUM [Concomitant]
     Active Substance: ESOMEPRAZOLE MAGNESIUM
  21. SALINE NASAL MIST [Concomitant]
  22. VYTORIN [Concomitant]
     Active Substance: EZETIMIBE\SIMVASTATIN
  23. GLUCOPHAGE [Concomitant]
     Active Substance: METFORMIN HYDROCHLORIDE
  24. REFRESH P.M. OINTMENT [Concomitant]
  25. METHADONE [Concomitant]
     Active Substance: METHADONE HYDROCHLORIDE
  26. SYMBICORT [Concomitant]
     Active Substance: BUDESONIDE\FORMOTEROL FUMARATE DIHYDRATE
  27. HIZENTRA [Suspect]
     Active Substance: HUMAN IMMUNOGLOBULIN G
     Indication: IMMUNODEFICIENCY COMMON VARIABLE
     Route: 058
  28. ACETAMINOPHEN. [Concomitant]
     Active Substance: ACETAMINOPHEN
  29. DIPHENHYDRAMINE. [Concomitant]
     Active Substance: DIPHENHYDRAMINE
  30. CAPTOPRIL. [Concomitant]
     Active Substance: CAPTOPRIL
  31. HUMULIN R [Concomitant]
     Active Substance: INSULIN HUMAN
  32. VOLTAREN [Concomitant]
     Active Substance: DICLOFENAC SODIUM
  33. DOCUSATE SODIUM-SENNOSIDES [Concomitant]
     Active Substance: DOCUSATE SODIUM\SENNOSIDES A AND B

REACTIONS (1)
  - Sinusitis [Unknown]
